FAERS Safety Report 7276648-6 (Version None)
Quarter: 2011Q1

REPORT INFORMATION
  Report Type: 
  Country: None (occurrence: None)
  Receive Date: 20110204
  Receipt Date: 20110126
  Transmission Date: 20110831
  Serious: Yes (Hospitalization)
  Sender: FDA-Public Use
  Company Number: US-ASTRAZENECA-2010SE37933

PATIENT
  Age: 57 Year
  Sex: Female

DRUGS (1)
  1. NEXIUM [Suspect]
     Route: 048

REACTIONS (7)
  - INFECTION [None]
  - DRUG PRESCRIBING ERROR [None]
  - BACTERIAL INFECTION [None]
  - PAIN [None]
  - STRESS [None]
  - GASTRIC PH INCREASED [None]
  - DRUG DOSE OMISSION [None]
